FAERS Safety Report 18265361 (Version 1)
Quarter: 2020Q3

REPORT INFORMATION
  Report Type: Other
  Country: US (occurrence: US)
  Receive Date: 20200914
  Receipt Date: 20200914
  Transmission Date: 20201103
  Serious: No
  Sender: FDA-Public Use
  Company Number: US-LEADIANT BIOSCIENCES INC-2020STPI000084

PATIENT

DRUGS (15)
  1. GLEOSTINE [Concomitant]
     Active Substance: LOMUSTINE
  2. PROCHLORPERAZ [Concomitant]
     Active Substance: PROCHLORPERAZINE MALEATE
  3. LEVOFLOXACIN. [Concomitant]
     Active Substance: LEVOFLOXACIN
  4. XARELTO [Concomitant]
     Active Substance: RIVAROXABAN
  5. MATULANE [Suspect]
     Active Substance: PROCARBAZINE HYDROCHLORIDE
     Indication: BRAIN NEOPLASM MALIGNANT
     Dosage: UNK
     Dates: start: 20191017
  6. APREPITANT. [Concomitant]
     Active Substance: APREPITANT
  7. ONDANSETRON [Concomitant]
     Active Substance: ONDANSETRON
  8. VALACYCLOVIR HCL [Concomitant]
     Active Substance: VALACYCLOVIR HYDROCHLORIDE
  9. MIRTAZAPINE. [Concomitant]
     Active Substance: MIRTAZAPINE
  10. TRAZODONE [Concomitant]
     Active Substance: TRAZODONE HYDROCHLORIDE
  11. LEVETIRACETAM. [Concomitant]
     Active Substance: LEVETIRACETAM
  12. CHLORHEX [Concomitant]
     Active Substance: CHLORHEXIDINE GLUCONATE
  13. TIZANIDINE. [Concomitant]
     Active Substance: TIZANIDINE
  14. ATOVAQUONE. [Concomitant]
     Active Substance: ATOVAQUONE
  15. TOPIRAMATE. [Concomitant]
     Active Substance: TOPIRAMATE

REACTIONS (2)
  - Seizure [Unknown]
  - Nausea [Unknown]

NARRATIVE: CASE EVENT DATE: 20200118
